FAERS Safety Report 7756482-0 (Version None)
Quarter: 2011Q3

REPORT INFORMATION
  Report Type: 
  Country: None (occurrence: None)
  Receive Date: 20110916
  Receipt Date: 20110906
  Transmission Date: 20111222
  Serious: Yes (Hospitalization)
  Sender: FDA-Public Use
  Company Number: JP-EISAI INC-E7389-01458-SPO-JP

PATIENT
  Age: 67 Year
  Sex: Female

DRUGS (6)
  1. DECADRON [Concomitant]
     Route: 042
  2. VITAMEDIN [Concomitant]
     Indication: STOMATITIS
     Route: 048
  3. ALLELOCK OD [Concomitant]
     Route: 048
  4. HALAVEN [Suspect]
     Indication: BREAST CANCER
     Route: 041
     Dates: start: 20110811
  5. TYKERB [Concomitant]
     Route: 048
  6. MAGNESIUM SULFATE [Concomitant]

REACTIONS (6)
  - VOMITING [None]
  - PAIN [None]
  - FEELING HOT [None]
  - STOMATITIS [None]
  - NEUTROPENIA [None]
  - HEADACHE [None]
